FAERS Safety Report 21017022 (Version 2)
Quarter: 2022Q3

REPORT INFORMATION
  Report Type: Report from Study
  Country: DE (occurrence: DE)
  Receive Date: 20220628
  Receipt Date: 20220708
  Transmission Date: 20221027
  Serious: Yes (Hospitalization, Other)
  Sender: FDA-Public Use
  Company Number: DE-TAKEDA-2022TUS042365

PATIENT
  Sex: Male

DRUGS (2)
  1. ANTI-INHIBITOR COAGULANT COMPLEX [Suspect]
     Active Substance: ANTI-INHIBITOR COAGULANT COMPLEX
     Indication: Acquired haemophilia
     Dosage: 2000 INTERNATIONAL UNIT, Q3WEEKS
     Route: 042
     Dates: start: 20220517
  2. ANTI-INHIBITOR COAGULANT COMPLEX [Suspect]
     Active Substance: ANTI-INHIBITOR COAGULANT COMPLEX
     Dosage: 2000 INTERNATIONAL UNIT, Q3WEEKS
     Route: 042
     Dates: start: 20220517, end: 20220626

REACTIONS (11)
  - Somnolence [Unknown]
  - Hospitalisation [Recovered/Resolved]
  - Fall [Recovering/Resolving]
  - Disorientation [Recovered/Resolved]
  - Haematoma [Recovering/Resolving]
  - Confusional state [Recovered/Resolved]
  - Aggression [Recovered/Resolved]
  - General physical health deterioration [Recovered/Resolved]
  - Wrist fracture [Recovering/Resolving]
  - Pallor [Recovered/Resolved]
  - Weight decreased [Recovered/Resolved]

NARRATIVE: CASE EVENT DATE: 20220531
